FAERS Safety Report 25403850 (Version 2)
Quarter: 2025Q3

REPORT INFORMATION
  Report Type: Spontaneous
  Country: US (occurrence: US)
  Receive Date: 20250606
  Receipt Date: 20250714
  Transmission Date: 20251021
  Serious: Yes (Other)
  Sender: ROCHE
  Company Number: US-ROCHE-10000301631

PATIENT
  Age: 79 Year
  Sex: Male
  Weight: 76.66 kg

DRUGS (13)
  1. XOLAIR [Suspect]
     Active Substance: OMALIZUMAB
     Indication: Asthma
     Route: 058
     Dates: start: 20240620
  2. XOLAIR [Suspect]
     Active Substance: OMALIZUMAB
     Route: 058
     Dates: start: 20240620
  3. XOLAIR [Suspect]
     Active Substance: OMALIZUMAB
     Route: 058
     Dates: start: 20240626
  4. IRON [Concomitant]
     Active Substance: IRON
  5. VITAMIN B12 [Concomitant]
     Active Substance: CYANOCOBALAMIN
  6. PREDNISONE [Concomitant]
     Active Substance: PREDNISONE
     Dates: start: 202505
  7. LEVOFLOXACIN [Concomitant]
     Active Substance: LEVOFLOXACIN
  8. MONTELUKAST [Concomitant]
     Active Substance: MONTELUKAST
  9. BUDESONIDE [Concomitant]
     Active Substance: BUDESONIDE
  10. IRBESARTAN [Concomitant]
     Active Substance: IRBESARTAN
  11. DOXAZOSIN [Concomitant]
     Active Substance: DOXAZOSIN MESYLATE
  12. KETOCONAZOLE [Concomitant]
     Active Substance: KETOCONAZOLE
  13. BREO ELLIPTA [Concomitant]
     Active Substance: FLUTICASONE FUROATE\VILANTEROL TRIFENATATE

REACTIONS (1)
  - Pneumonia [Unknown]
